FAERS Safety Report 23505065 (Version 1)
Quarter: 2024Q1

REPORT INFORMATION
  Report Type: Spontaneous
  Country: US (occurrence: None)
  Receive Date: 20240208
  Receipt Date: 20240208
  Transmission Date: 20240409
  Serious: Yes (Death)
  Sender: FDA-Public Use
  Company Number: None

PATIENT
  Age: 82 Year
  Sex: Male

DRUGS (1)
  1. LENALIDOMIDE [Suspect]
     Active Substance: LENALIDOMIDE
     Indication: Myelodysplastic syndrome
     Dosage: 10MG QD ORAL?
     Route: 048
     Dates: start: 20231106, end: 20231205

REACTIONS (9)
  - Pyrexia [None]
  - Asthenia [None]
  - Fall [None]
  - Pneumonia [None]
  - Viral infection [None]
  - Urinary tract infection [None]
  - Leukocytosis [None]
  - Respiratory failure [None]
  - Acute coronary syndrome [None]

NARRATIVE: CASE EVENT DATE: 20231220
